FAERS Safety Report 21501387 (Version 1)
Quarter: 2022Q4

REPORT INFORMATION
  Report Type: Report from Study
  Country: JP (occurrence: JP)
  Receive Date: 20221025
  Receipt Date: 20221025
  Transmission Date: 20230113
  Serious: Yes (Hospitalization)
  Sender: FDA-Public Use
  Company Number: JP-BAXTER-2022BAX006556

PATIENT
  Age: 57 Year
  Sex: Female

DRUGS (18)
  1. CYCLOPHOSPHAMIDE [Suspect]
     Active Substance: CYCLOPHOSPHAMIDE
     Indication: Triple negative breast cancer
     Dosage: 906 MG, Q2W, DOSE-DENSE FIRST AC THERAPY
     Route: 042
     Dates: start: 20220117
  2. CYCLOPHOSPHAMIDE [Suspect]
     Active Substance: CYCLOPHOSPHAMIDE
     Dosage: 906 MG, Q2W, DOSE-DENSE AC 2ND ADMINISTRATION
     Route: 042
  3. CYCLOPHOSPHAMIDE [Suspect]
     Active Substance: CYCLOPHOSPHAMIDE
     Dosage: 906 MG, Q2W, DOSE-DENSE AC 3RD ADMINISTRATION
     Route: 042
  4. CYCLOPHOSPHAMIDE [Suspect]
     Active Substance: CYCLOPHOSPHAMIDE
     Dosage: 906 MG, Q2W, DOSE-DENSE AC 4THND ADMINISTRATION
     Route: 042
  5. DOXORUBICIN [Suspect]
     Active Substance: DOXORUBICIN
     Indication: Triple negative breast cancer
     Dosage: 90 MG, Q2W, DOSE-DENSE AC THERAPY
     Route: 042
     Dates: start: 20220117
  6. DOXORUBICIN [Suspect]
     Active Substance: DOXORUBICIN
     Dosage: 90 MG, Q2W, DOSE-DENSE AC 2ND ADMINISTRATION
     Route: 042
  7. DOXORUBICIN [Suspect]
     Active Substance: DOXORUBICIN
     Dosage: 90 MG, Q2W, DOSE-DENSE AC 3RD ADMINISTRATION
     Route: 042
  8. DOXORUBICIN [Suspect]
     Active Substance: DOXORUBICIN
     Dosage: 90 MG, Q2W, DOSE-DENSE AC 4TH ADMINISTRATION
     Route: 042
  9. ATEZOLIZUMAB [Suspect]
     Active Substance: ATEZOLIZUMAB
     Indication: Triple negative breast cancer
     Dosage: 840 MG, Q2W, (GENETICAL RECOMBINATION) FIRST THERAPY
     Route: 042
     Dates: start: 20211025
  10. ATEZOLIZUMAB [Suspect]
     Active Substance: ATEZOLIZUMAB
     Dosage: 840 MG, Q2W, (GENETICAL RECOMBINATION) 2ND ADMINISTRATION
     Route: 042
  11. ATEZOLIZUMAB [Suspect]
     Active Substance: ATEZOLIZUMAB
     Dosage: 840 MG, Q2W, (GENETICAL RECOMBINATION) 3RD ADMINISTRATION
     Route: 042
  12. ATEZOLIZUMAB [Suspect]
     Active Substance: ATEZOLIZUMAB
     Dosage: 840 MG, Q2W, (GENETICAL RECOMBINATION) 4TH ADMINISTRATION
     Route: 042
  13. PACLITAXEL [Concomitant]
     Active Substance: PACLITAXEL
     Indication: Triple negative breast cancer
     Dosage: UNK
     Route: 042
     Dates: start: 20211025
  14. PACLITAXEL [Concomitant]
     Active Substance: PACLITAXEL
     Dosage: UNK
     Route: 042
     Dates: start: 20220111
  15. EPIRUBICIN HYDROCHLORIDE [Concomitant]
     Active Substance: EPIRUBICIN HYDROCHLORIDE
     Indication: Triple negative breast cancer
     Dosage: UNK
     Route: 042
  16. PEGFILGRASTIM [Concomitant]
     Active Substance: PEGFILGRASTIM
     Indication: Product used for unknown indication
     Dosage: (GENETICAL RECOMBINATION)
     Route: 058
     Dates: start: 20220119, end: 20220119
  17. PEGFILGRASTIM [Concomitant]
     Active Substance: PEGFILGRASTIM
     Dosage: (GENETICAL RECOMBINATION)
     Route: 058
     Dates: start: 20220202, end: 20220202
  18. PEGFILGRASTIM [Concomitant]
     Active Substance: PEGFILGRASTIM
     Dosage: (GENETICAL RECOMBINATION)
     Route: 058
     Dates: start: 20220222, end: 20220222

REACTIONS (1)
  - Decreased appetite [Recovered/Resolved]

NARRATIVE: CASE EVENT DATE: 20220118
